FAERS Safety Report 11517426 (Version 2)
Quarter: 2015Q4

REPORT INFORMATION
  Report Type: Spontaneous
  Country: IT (occurrence: IT)
  Receive Date: 20150917
  Receipt Date: 20151005
  Transmission Date: 20160304
  Serious: Yes (Hospitalization, Other)
  Sender: FDA-Public Use
  Company Number: IT-PFIZER INC-2015310210

PATIENT
  Sex: Male

DRUGS (4)
  1. AMOXICILLIN/CLAVULANIC ACID [Concomitant]
     Dosage: 12.5 MG/KG/12
  2. TACROLIMUS. [Suspect]
     Active Substance: TACROLIMUS
     Dosage: 300 MG/12 H
  3. CYCLOSPORINE. [Suspect]
     Active Substance: CYCLOSPORINE
     Dosage: 10-12 MG/12 H
  4. METHYLPREDNISOLONE. [Suspect]
     Active Substance: METHYLPREDNISOLONE
     Dosage: 0.4-6 MG/24 H

REACTIONS (2)
  - Immunosuppression [Unknown]
  - Sinusitis [Recovered/Resolved]

NARRATIVE: CASE EVENT DATE: 201411
